FAERS Safety Report 8376318-7 (Version None)
Quarter: 2012Q2

REPORT INFORMATION
  Report Type: 
  Country: None (occurrence: None)
  Receive Date: 20120518
  Receipt Date: 20120514
  Transmission Date: 20120825
  Serious: Yes (Death, Life-Threatening, Other)
  Sender: FDA-Public Use
  Company Number: GER/UKI/12/0023899

PATIENT
  Age: 70 Year
  Sex: Female
  Weight: 80 kg

DRUGS (9)
  1. METHOTREXATE [Suspect]
     Indication: PSORIATIC ARTHROPATHY
     Dosage: 20 MG, 1 IN 1 WK, ORAL
     Route: 048
     Dates: end: 20120407
  2. PIPERACILLIN AND TAZOBACTAM [Suspect]
     Indication: INFECTION
     Dosage: 4.5 MG, 2 IN 1 D, INTRAVENOUS (NOT OTHERWISE SPECIFIED)
     Route: 042
     Dates: start: 20120405
  3. GENTAMICIN [Concomitant]
  4. CIPROFLOXACIN [Suspect]
     Indication: INFECTION
     Dosage: 1 DOSAGE FORMS, 2 IN 1 D, ORAL, 2 GM
     Route: 048
     Dates: start: 20110329, end: 20120405
  5. CIPROFLOXACIN [Suspect]
     Indication: INFECTION
     Dosage: 1 DOSAGE FORMS, 2 IN 1 D, ORAL, 2 GM
     Route: 048
     Dates: start: 20090601
  6. CIPROFLOXACIN [Suspect]
     Indication: INFECTION
     Dosage: 1 DOSAGE FORMS, 2 IN 1 D, ORAL, 2 GM
     Route: 048
  7. RIFAMPICIN [Concomitant]
  8. ALLOPURINOL [Concomitant]
  9. TEICOPLANIN (TEICOPLANIN) [Concomitant]

REACTIONS (11)
  - TACHYCARDIA [None]
  - STEVENS-JOHNSON SYNDROME [None]
  - LIVER FUNCTION TEST ABNORMAL [None]
  - PYREXIA [None]
  - SEPSIS [None]
  - HAEMOGLOBIN DECREASED [None]
  - RENAL FAILURE ACUTE [None]
  - WHITE BLOOD CELL COUNT DECREASED [None]
  - PANCYTOPENIA [None]
  - INFLAMMATION [None]
  - PAIN [None]
